FAERS Safety Report 4897099-5 (Version None)
Quarter: 2005Q4

REPORT INFORMATION
  Report Type: 
  Country: None (occurrence: None)
  Receive Date: 20051228
  Receipt Date: 20050523
  Transmission Date: 20060501
  Serious: Yes (Hospitalization, Other)
  Sender: FDA-Public Use
  Company Number: USA050598784

PATIENT
  Age: 48 Year
  Sex: Female

DRUGS (6)
  1. HUMULIN N [Suspect]
  2. HUMULIN R [Suspect]
  3. HUMALOG MIX 75/25 [Suspect]
     Dosage: 45 U/2 DAY
  4. TAGAMET [Concomitant]
  5. PRILOSEC [Concomitant]
  6. PREVACID [Concomitant]

REACTIONS (6)
  - BALANCE DISORDER [None]
  - BLOOD GLUCOSE INCREASED [None]
  - CARPAL TUNNEL SYNDROME [None]
  - DIZZINESS [None]
  - RASH MACULAR [None]
  - RASH MACULO-PAPULAR [None]
